FAERS Safety Report 7994375-4 (Version None)
Quarter: 2011Q4

REPORT INFORMATION
  Report Type: 
  Country: None (occurrence: None)
  Receive Date: 20111220
  Receipt Date: 20111215
  Transmission Date: 20120403
  Serious: Yes (Other)
  Sender: FDA-Public Use
  Company Number: DE-EISAI INC-E2090-01907-SPO-DE

PATIENT
  Age: 19 Year
  Sex: Female

DRUGS (1)
  1. ZONEGRAN [Suspect]
     Dosage: 50 MG DAILY
     Route: 048
     Dates: start: 20111208, end: 20111213

REACTIONS (2)
  - DRUG ERUPTION [None]
  - FATIGUE [None]
